FAERS Safety Report 5856984-8 (Version None)
Quarter: 2008Q3

REPORT INFORMATION
  Report Type: 
  Country: None (occurrence: None)
  Receive Date: 20080825
  Receipt Date: 20080814
  Transmission Date: 20090109
  Serious: No
  Sender: FDA-Public Use
  Company Number: US-BOEHRINGER INGELHEIM GMBH, GERMANY-2008-BP-10977BP

PATIENT
  Sex: Male

DRUGS (15)
  1. SPIRIVA [Suspect]
     Indication: CHRONIC OBSTRUCTIVE PULMONARY DISEASE
     Route: 055
     Dates: start: 20020101
  2. SPIRIVA [Suspect]
     Indication: BRONCHITIS CHRONIC
  3. ADVAIR DISKUS 100/50 [Concomitant]
     Indication: CHRONIC OBSTRUCTIVE PULMONARY DISEASE
     Route: 055
  4. SINGULAIR [Concomitant]
     Indication: INTERSTITIAL LUNG DISEASE
     Route: 048
  5. ALBUTEROL/ATROVENT [Concomitant]
     Indication: MYOSITIS
     Route: 055
  6. ALBUTEROL [Concomitant]
     Indication: MYOSITIS
     Route: 055
  7. SUDAFED 12 HOUR [Concomitant]
     Route: 048
  8. CLOBETASOL PROPIONATE [Concomitant]
     Route: 048
  9. ASPIRIN [Concomitant]
     Route: 048
  10. ARTHROTEC [Concomitant]
     Route: 048
  11. XANAX [Concomitant]
     Route: 048
  12. CIALIS [Concomitant]
     Route: 048
  13. EFFEXOR XR [Concomitant]
     Route: 048
  14. ELAVIL [Concomitant]
     Route: 048
  15. OXYGEN [Concomitant]
     Route: 055

REACTIONS (2)
  - DRUG INEFFECTIVE [None]
  - DYSPNOEA [None]
